FAERS Safety Report 7914790-4 (Version None)
Quarter: 2011Q4

REPORT INFORMATION
  Report Type: 
  Country: None (occurrence: None)
  Receive Date: 20111115
  Receipt Date: 20111107
  Transmission Date: 20120403
  Serious: Yes (Other)
  Sender: FDA-Public Use
  Company Number: US-ROXANE LABORATORIES, INC.-2011-RO-01599RO

PATIENT
  Age: 47 Year
  Sex: Female

DRUGS (3)
  1. PREDNISONE TAB [Suspect]
     Indication: PEMPHIGUS
     Dosage: 60 MG
     Route: 048
     Dates: start: 20040626, end: 20050225
  2. IMMUNE GLOBULIN NOS [Concomitant]
     Route: 042
  3. MYCOPHENOLATE MOFETIL [Suspect]
     Indication: PEMPHIGUS
     Dosage: 3000 MG
     Dates: start: 20040629, end: 20050225

REACTIONS (4)
  - CUSHINGOID [None]
  - NEUROPATHY PERIPHERAL [None]
  - DIABETES MELLITUS [None]
  - DRUG INEFFECTIVE [None]
